FAERS Safety Report 4979908-4 (Version None)
Quarter: 2006Q2

REPORT INFORMATION
  Report Type: 
  Country: None (occurrence: None)
  Receive Date: 20060421
  Receipt Date: 20060117
  Transmission Date: 20061013
  Serious: Yes (Death)
  Sender: FDA-Public Use
  Company Number: US-MERCK-0601USA02161

PATIENT
  Age: 68 Year
  Sex: Male
  Weight: 132 kg

DRUGS (4)
  1. VIOXX [Suspect]
     Indication: RHEUMATOID ARTHRITIS
     Route: 048
     Dates: start: 19990701, end: 20040327
  2. ASPIRIN [Concomitant]
     Route: 065
  3. GLUCOTROL [Concomitant]
     Indication: DIABETES MELLITUS
     Route: 065
  4. HYZAAR [Concomitant]
     Indication: HYPERTENSION
     Route: 065

REACTIONS (4)
  - BLOOD CHOLESTEROL INCREASED [None]
  - DIABETES MELLITUS [None]
  - HYPERTENSION [None]
  - MYOCARDIAL INFARCTION [None]
